FAERS Safety Report 20542051 (Version 1)
Quarter: 2022Q1

REPORT INFORMATION
  Report Type: Spontaneous
  Country: AU (occurrence: AU)
  Receive Date: 20220302
  Receipt Date: 20220302
  Transmission Date: 20220424
  Serious: Yes (Other)
  Sender: FDA-Public Use
  Company Number: AU-JNJFOC-20211043458

PATIENT
  Age: 38 Year
  Sex: Female

DRUGS (1)
  1. STELARA [Suspect]
     Active Substance: USTEKINUMAB
     Indication: Product used for unknown indication
     Route: 042
     Dates: start: 20210121

REACTIONS (6)
  - Crohn^s disease [Unknown]
  - Rheumatoid arthritis [Unknown]
  - Alopecia [Unknown]
  - Contusion [Unknown]
  - Feeling abnormal [Unknown]
  - Headache [Unknown]
